FAERS Safety Report 6631412-3 (Version None)
Quarter: 2010Q1

REPORT INFORMATION
  Report Type: 
  Country: None (occurrence: None)
  Receive Date: 20100312
  Receipt Date: 20100304
  Transmission Date: 20100710
  Serious: Yes (Hospitalization, Disabling, Other)
  Sender: FDA-Public Use
  Company Number: BR-ABBOTT-07P-020-0431141-00

PATIENT
  Sex: Male
  Weight: 73 kg

DRUGS (14)
  1. HUMIRA [Suspect]
     Indication: RHEUMATOID ARTHRITIS
     Route: 058
     Dates: end: 20070601
  2. HUMIRA [Suspect]
     Route: 058
     Dates: start: 20081107
  3. PENTAL [Concomitant]
     Indication: DRUG USE FOR UNKNOWN INDICATION
  4. RIVOTRIL [Concomitant]
     Indication: DRUG USE FOR UNKNOWN INDICATION
  5. LEXAPRO [Concomitant]
     Indication: DEPRESSION
     Route: 048
  6. METICORTEN [Concomitant]
     Indication: DRUG USE FOR UNKNOWN INDICATION
  7. CLEXANE [Concomitant]
     Indication: ANTICOAGULANT THERAPY
     Route: 058
  8. KD [Concomitant]
     Indication: DRUG USE FOR UNKNOWN INDICATION
  9. LIPITOR [Concomitant]
     Indication: DRUG USE FOR UNKNOWN INDICATION
  10. OSCAL D [Concomitant]
     Indication: MINERAL SUPPLEMENTATION
     Route: 048
  11. TRENTAL [Concomitant]
     Indication: CEREBRAL ARTERY EMBOLISM
     Route: 048
  12. PANTOZOL [Concomitant]
     Indication: BLOOD PRESSURE
     Route: 048
  13. ATENSINA [Concomitant]
     Indication: BLOOD PRESSURE
     Route: 048
  14. UNKNOWN THERAPY [Concomitant]
     Indication: RESPIRATORY THERAPY

REACTIONS (23)
  - ABASIA [None]
  - APHASIA [None]
  - BLOOD PRESSURE ABNORMAL [None]
  - BONE DISORDER [None]
  - CARDIOVASCULAR DISORDER [None]
  - CEREBRAL ARTERY EMBOLISM [None]
  - CEREBRAL HAEMORRHAGE [None]
  - CEREBROVASCULAR ACCIDENT [None]
  - CHOKING [None]
  - COMA [None]
  - FAECAL INCONTINENCE [None]
  - FALL [None]
  - FEMUR FRACTURE [None]
  - GANGRENE [None]
  - INCREASED UPPER AIRWAY SECRETION [None]
  - JOINT SWELLING [None]
  - NECROSIS [None]
  - PROSTATE CANCER [None]
  - TOE AMPUTATION [None]
  - TRACHEOSTOMY [None]
  - URINARY BLADDER HAEMORRHAGE [None]
  - URINARY INCONTINENCE [None]
  - WEIGHT DECREASED [None]
